FAERS Safety Report 6097806-2 (Version None)
Quarter: 2009Q1

REPORT INFORMATION
  Report Type: 
  Country: None (occurrence: None)
  Receive Date: 20090227
  Receipt Date: 20090219
  Transmission Date: 20090719
  Serious: Yes (Other)
  Sender: FDA-Public Use
  Company Number: US-JNJCH-2009005010

PATIENT
  Age: 40 Year
  Sex: Female
  Weight: 54.4 kg

DRUGS (7)
  1. SUDAFED PE SINUS HEADACHE CAPLET [Suspect]
     Indication: INFLUENZA
     Dosage: TEXT:2 TABLETS THREE TIMES A DAY
     Route: 048
  2. NAPROXEN [Concomitant]
     Indication: MUSCLE DISORDER
     Dosage: TEXT:1/2 DAY
     Route: 065
  3. DRUG, UNSPECIFIED [Concomitant]
     Indication: EYE DISORDER
     Dosage: TEXT:0.1%
     Route: 065
  4. ACYCLOVIR SODIUM [Concomitant]
     Indication: HERPES OPHTHALMIC
     Dosage: TEXT:200 MG
     Route: 065
  5. SYNTHROID [Concomitant]
     Indication: THYROID DISORDER
     Dosage: TEXT:225 MG
     Route: 065
  6. PROTONIX [Concomitant]
     Indication: HERNIA
     Dosage: TEXT:40 MG
     Route: 065
  7. ZOLOFT [Concomitant]
     Indication: STRESS
     Dosage: TEXT:100 MG
     Route: 065

REACTIONS (4)
  - CORNEAL TRANSPLANT [None]
  - EYE SWELLING [None]
  - HEADACHE [None]
  - HERPES OPHTHALMIC [None]
